FAERS Safety Report 6385706-X (Version None)
Quarter: 2009Q4

REPORT INFORMATION
  Report Type: 
  Country: None (occurrence: None)
  Receive Date: 20091002
  Receipt Date: 20081002
  Transmission Date: 20100525
  Serious: No
  Sender: FDA-Public Use
  Company Number: US-ASTRAZENECA-2008UW21411

PATIENT
  Age: 60 Year
  Sex: Female
  Weight: 79.4 kg

DRUGS (3)
  1. ARIMIDEX [Suspect]
     Indication: BREAST CANCER
     Route: 048
  2. CALCIUM WITH VITAMIN D [Concomitant]
  3. CLONIDINE [Concomitant]

REACTIONS (11)
  - ARTHRALGIA [None]
  - ARTHRITIS [None]
  - BREAST PAIN [None]
  - COUGH [None]
  - DRUG DOSE OMISSION [None]
  - DYSPNOEA [None]
  - HOT FLUSH [None]
  - OEDEMA PERIPHERAL [None]
  - RASH [None]
  - VULVOVAGINAL DRYNESS [None]
  - WEIGHT INCREASED [None]
